FAERS Safety Report 4787626-0 (Version None)
Quarter: 2005Q4

REPORT INFORMATION
  Report Type: 
  Country: None (occurrence: None)
  Receive Date: 20051003
  Receipt Date: 20050920
  Transmission Date: 20060501
  Serious: Yes (Other)
  Sender: FDA-Public Use
  Company Number: 2005131906

PATIENT
  Age: 57 Year
  Sex: Female

DRUGS (5)
  1. AMLODIPINE [Suspect]
     Indication: ILL-DEFINED DISORDER
     Dosage: 5 MG (5 MG, DAILY INTERVAL:  EVERY DAY), ORAL
     Route: 048
     Dates: start: 20050224
  2. CLOZAPINE [Suspect]
     Indication: ILL-DEFINED DISORDER
     Dosage: 100 TO 275 MG (DAILY INTERVAL:  EVERY DAY), ORAL
     Route: 048
     Dates: start: 20050321
  3. VALPROIC ACID [Suspect]
     Indication: ILL-DEFINED DISORDER
     Dosage: 900 MG (900 MG, DAILY INTERNAL:  EVERY DAY), ORAL
     Route: 048
     Dates: start: 20050512
  4. AMISULPRIDE (AMISULPRIDE) [Concomitant]
  5. ACETAMINOPHEN W/ CODEINE [Concomitant]

REACTIONS (1)
  - NEUTROPHIL COUNT DECREASED [None]
